FAERS Safety Report 12332235 (Version 1)
Quarter: 2016Q2

REPORT INFORMATION
  Report Type: Spontaneous
  Country: US (occurrence: US)
  Receive Date: 20160504
  Receipt Date: 20160504
  Transmission Date: 20160815
  Serious: No
  Sender: FDA-Public Use
  Company Number: US-ROCHE-1650946

PATIENT
  Sex: Male
  Weight: 81.72 kg

DRUGS (1)
  1. PIRFENIDONE [Suspect]
     Active Substance: PIRFENIDONE
     Indication: IDIOPATHIC PULMONARY FIBROSIS
     Dosage: TOTAL-2403MG DAILY PO, 3 CAPS PO TID
     Route: 048
     Dates: start: 20150311

REACTIONS (2)
  - Abdominal discomfort [Unknown]
  - Chest discomfort [Unknown]
